FAERS Safety Report 13819703 (Version 1)
Quarter: 2017Q3

REPORT INFORMATION
  Report Type: Spontaneous
  Country: US (occurrence: US)
  Receive Date: 20170731
  Receipt Date: 20170731
  Transmission Date: 20171127
  Serious: Yes (Other)
  Sender: FDA-Public Use
  Company Number: US-ASTRAZENECA-2017SE76919

PATIENT
  Age: 55 Year
  Sex: Male

DRUGS (4)
  1. TRESIBA FLEXTOUCH U200 [Suspect]
     Active Substance: INSULIN DEGLUDEC
     Indication: TYPE 2 DIABETES MELLITUS
     Dosage: 200U/ML
     Route: 065
     Dates: start: 201606, end: 201703
  2. FARXIGA [Suspect]
     Active Substance: DAPAGLIFLOZIN PROPANEDIOL
     Indication: TYPE 2 DIABETES MELLITUS
     Route: 048
     Dates: start: 20151201, end: 20151221
  3. HUMALOG [Concomitant]
     Active Substance: INSULIN LISPRO
  4. NOVOLIN N [Suspect]
     Active Substance: INSULIN HUMAN
     Indication: TYPE 2 DIABETES MELLITUS
     Dosage: 40IU/ML
     Route: 065
     Dates: start: 201703

REACTIONS (3)
  - Blood glucose increased [Not Recovered/Not Resolved]
  - Bladder pain [Unknown]
  - Glucagonoma [Not Recovered/Not Resolved]
